FAERS Safety Report 25250700 (Version 2)
Quarter: 2025Q2

REPORT INFORMATION
  Report Type: Report from Study
  Country: US (occurrence: US)
  Receive Date: 20250429
  Receipt Date: 20250507
  Transmission Date: 20250717
  Serious: No
  Sender: AURINIA PHARMACEUTICALS
  Company Number: US-OTSUKA PHARMACEUTICAL NETHERLANDS B.V.-AUR-008634

PATIENT
  Age: 61 Year
  Sex: Female

DRUGS (1)
  1. LUPKYNIS [Suspect]
     Active Substance: VOCLOSPORIN
     Indication: Lupus nephritis
     Dosage: 23.7 MILLIGRAM, BID
     Route: 048
     Dates: start: 20240723

REACTIONS (9)
  - Urine protein/creatinine ratio increased [Not Recovered/Not Resolved]
  - Haematuria [Unknown]
  - Micturition urgency [Unknown]
  - Joint deformity [Unknown]
  - Inflammation [Unknown]
  - Glomerular filtration rate decreased [Unknown]
  - Fine motor skill dysfunction [Unknown]
  - Grip strength decreased [Unknown]
  - Therapy partial responder [Unknown]

NARRATIVE: CASE EVENT DATE: 20250122
